FAERS Safety Report 7787744-9 (Version None)
Quarter: 2011Q3

REPORT INFORMATION
  Report Type: 
  Country: None (occurrence: None)
  Receive Date: 20110929
  Receipt Date: 20110922
  Transmission Date: 20111222
  Serious: Yes (Other)
  Sender: FDA-Public Use
  Company Number: GT-ABBOTT-10P-069-0690521-00

PATIENT
  Sex: Female

DRUGS (3)
  1. LAMIVUDINE + ZIDOVUDINE [Concomitant]
     Indication: HIV INFECTION
     Dosage: 600/300 MG DAILY; 300/150 MG UNIT DOSE
     Route: 048
     Dates: start: 20050420, end: 20050812
  2. ALUVIA TABLETS 200MG/50MG [Suspect]
     Indication: PROPHYLAXIS
  3. ALUVIA TABLETS 200MG/50MG [Suspect]
     Indication: HUMAN IMMUNODEFICIENCY VIRUS TRANSMISSION
     Dosage: 400/100 MG DAILY: 200/50 MG DOSE TWICE DAILY
     Route: 048
     Dates: start: 20050720

REACTIONS (2)
  - MATERNAL DRUGS AFFECTING FOETUS [None]
  - STILLBIRTH [None]
